FAERS Safety Report 5456659-3 (Version None)
Quarter: 2007Q3

REPORT INFORMATION
  Report Type: 
  Country: None (occurrence: None)
  Receive Date: 20070918
  Receipt Date: 20061120
  Transmission Date: 20080115
  Serious: No
  Sender: FDA-Public Use
  Company Number: US-ASTRAZENECA-2006UW25743

PATIENT
  Age: 58 Year
  Sex: Female

DRUGS (2)
  1. SEROQUEL [Suspect]
     Route: 048
     Dates: end: 20061028
  2. DEPAKOTE [Concomitant]

REACTIONS (3)
  - FAECAL INCONTINENCE [None]
  - GASTROOESOPHAGEAL REFLUX DISEASE [None]
  - URINARY INCONTINENCE [None]
